FAERS Safety Report 7916834-2 (Version None)
Quarter: 2011Q4

REPORT INFORMATION
  Report Type: 
  Country: None (occurrence: None)
  Receive Date: 20111116
  Receipt Date: 20111108
  Transmission Date: 20120403
  Serious: Yes (Other)
  Sender: FDA-Public Use
  Company Number: FR-BRISTOL-MYERS SQUIBB COMPANY-16155731

PATIENT
  Age: 21 Year
  Sex: Male

DRUGS (4)
  1. ATARAX [Concomitant]
     Indication: STRESS
     Dosage: 1DF= STRENGTH-25 UNIT NOS
     Route: 048
     Dates: start: 20100201
  2. ABILIFY [Suspect]
     Indication: DEPRESSION
     Route: 048
     Dates: start: 20111004, end: 20111006
  3. MIRTAZAPINE [Concomitant]
     Indication: DEPRESSION
     Route: 048
     Dates: start: 20110401
  4. STRESAM [Concomitant]
     Indication: STRESS
     Route: 048
     Dates: start: 20100101

REACTIONS (4)
  - MUSCLE CONTRACTURE [None]
  - DYSSTASIA [None]
  - PAIN [None]
  - SPEECH DISORDER [None]
